FAERS Safety Report 17123594 (Version 7)
Quarter: 2020Q1

REPORT INFORMATION
  Report Type: Report from Study
  Country: NL (occurrence: NL)
  Receive Date: 20191206
  Receipt Date: 20200225
  Transmission Date: 20200409
  Serious: Yes (Hospitalization, Other)
  Sender: FDA-Public Use
  Company Number: NL-SECURA BIO, INC.-2019NL011810

PATIENT

DRUGS (23)
  1. OMEPRAZOLE. [Concomitant]
     Active Substance: OMEPRAZOLE
     Indication: PRODUCT USED FOR UNKNOWN INDICATION
     Dosage: UNK
     Dates: start: 20180702, end: 20191119
  2. BACLOFEN. [Concomitant]
     Active Substance: BACLOFEN
     Indication: PRODUCT USED FOR UNKNOWN INDICATION
  3. NITROFURANTOIN. [Concomitant]
     Active Substance: NITROFURANTOIN
     Indication: PRODUCT USED FOR UNKNOWN INDICATION
  4. FUROSEMIDE. [Concomitant]
     Active Substance: FUROSEMIDE
     Indication: PRODUCT USED FOR UNKNOWN INDICATION
     Dosage: UNK
     Dates: end: 20191018
  5. MICROGYNON 21 [Concomitant]
     Indication: PRODUCT USED FOR UNKNOWN INDICATION
  6. ESOMEPRAZOL [Concomitant]
     Active Substance: ESOMEPRAZOLE
     Indication: PRODUCT USED FOR UNKNOWN INDICATION
     Dosage: UNK
     Dates: start: 20191201, end: 20200201
  7. EUTHYROX [Concomitant]
     Active Substance: LEVOTHYROXINE SODIUM
     Indication: PRODUCT USED FOR UNKNOWN INDICATION
     Dosage: UNK
     Dates: start: 20180920, end: 20191119
  8. COTRIMOXAZOLE [Concomitant]
     Active Substance: SULFAMETHOXAZOLE\TRIMETHOPRIM
     Indication: PRODUCT USED FOR UNKNOWN INDICATION
     Dosage: UNK
     Dates: start: 20191018, end: 20191119
  9. DICLOFENAC [Concomitant]
     Active Substance: DICLOFENAC
     Indication: PRODUCT USED FOR UNKNOWN INDICATION
  10. VITAMIN D [Concomitant]
     Active Substance: VITAMIN D NOS
     Indication: PRODUCT USED FOR UNKNOWN INDICATION
  11. CELECOXIB. [Concomitant]
     Active Substance: CELECOXIB
     Indication: PRODUCT USED FOR UNKNOWN INDICATION
  12. MACROGOL [Concomitant]
     Active Substance: POLYETHYLENE GLYCOLS
     Indication: PRODUCT USED FOR UNKNOWN INDICATION
  13. PANOBINOSTAT [Suspect]
     Active Substance: PANOBINOSTAT
     Indication: GLIOMA
     Dosage: 40 MG, 3/WEEK
     Route: 048
     Dates: start: 20191018, end: 20200131
  14. TOLPERISONE [Concomitant]
     Active Substance: TOLPERISONE
     Indication: PRODUCT USED FOR UNKNOWN INDICATION
  15. DALTEPARIN [Concomitant]
     Active Substance: DALTEPARIN
     Indication: PRODUCT USED FOR UNKNOWN INDICATION
  16. HIDROCORTISON [Concomitant]
     Active Substance: HYDROCORTISONE
     Indication: PRODUCT USED FOR UNKNOWN INDICATION
  17. PANOBINOSTAT [Suspect]
     Active Substance: PANOBINOSTAT
     Dosage: 40 MG, 3/WEEK (2 WEEKS ON AND 2 WEEKS OFF)
     Dates: start: 20191202, end: 20200131
  18. EVEROLIMUS. [Suspect]
     Active Substance: EVEROLIMUS
     Indication: PRODUCT USED FOR UNKNOWN INDICATION
     Dosage: 5 MG QD
     Dates: start: 20191115
  19. PARACETAMOL [Concomitant]
     Active Substance: ACETAMINOPHEN
     Indication: PRODUCT USED FOR UNKNOWN INDICATION
  20. DIPIDOLOR [Concomitant]
     Active Substance: PIRITRAMIDE
     Indication: PRODUCT USED FOR UNKNOWN INDICATION
     Dosage: UNK
     Route: 065
  21. CLONIDINE. [Concomitant]
     Active Substance: CLONIDINE
     Indication: PRODUCT USED FOR UNKNOWN INDICATION
     Dosage: UNK
     Route: 065
  22. TRAMADOL. [Concomitant]
     Active Substance: TRAMADOL
     Indication: PRODUCT USED FOR UNKNOWN INDICATION
     Dosage: UNK
     Route: 065
     Dates: start: 20191115, end: 20200202
  23. SOLIFENACIN [Concomitant]
     Active Substance: SOLIFENACIN
     Indication: PRODUCT USED FOR UNKNOWN INDICATION
     Dosage: UNK
     Dates: start: 20190404, end: 20200201

REACTIONS (50)
  - Odynophagia [Not Recovered/Not Resolved]
  - Pelvic venous thrombosis [Recovering/Resolving]
  - Inflammation [Unknown]
  - Ileus paralytic [Recovered/Resolved]
  - Chills [Not Recovered/Not Resolved]
  - Dry mouth [Not Recovered/Not Resolved]
  - Candida infection [Unknown]
  - Supraventricular tachycardia [Unknown]
  - Blood phosphorus decreased [Unknown]
  - Blood creatinine decreased [Unknown]
  - Infection [Unknown]
  - Muscle spasms [Not Recovered/Not Resolved]
  - Fatigue [Recovered/Resolved]
  - Gastritis [Unknown]
  - Pyelonephritis [Recovered/Resolved]
  - Haematemesis [Recovered/Resolved]
  - Disseminated intravascular coagulation [Recovering/Resolving]
  - Abdominal pain [Recovered/Resolved]
  - Epistaxis [Recovered/Resolved]
  - Diarrhoea [Not Recovered/Not Resolved]
  - Enteritis [Recovered/Resolved]
  - Concomitant disease aggravated [Not Recovered/Not Resolved]
  - Vomiting [Not Recovered/Not Resolved]
  - Tremor [Not Recovered/Not Resolved]
  - Nausea [Recovered/Resolved]
  - Escherichia urinary tract infection [Unknown]
  - Thrombocytopenia [Unknown]
  - Abdominal pain upper [Not Recovered/Not Resolved]
  - Eye pain [Not Recovered/Not Resolved]
  - Oesophagitis [Recovered/Resolved]
  - Influenza like illness [Recovered/Resolved]
  - Electrocardiogram ST segment abnormal [Recovered/Resolved]
  - Increased tendency to bruise [Recovered/Resolved]
  - Diplopia [Recovered/Resolved]
  - Neutrophil count decreased [Unknown]
  - Impaired gastric emptying [Recovered/Resolved]
  - Malaise [Not Recovered/Not Resolved]
  - Tachycardia [Not Recovered/Not Resolved]
  - Rash [Not Recovered/Not Resolved]
  - Blood magnesium decreased [Unknown]
  - Neck pain [Not Recovered/Not Resolved]
  - Musculoskeletal pain [Not Recovered/Not Resolved]
  - White blood cell count decreased [Unknown]
  - Hypophosphataemia [Unknown]
  - Eczema [Not Recovered/Not Resolved]
  - Eructation [Not Recovered/Not Resolved]
  - Vena cava thrombosis [Recovering/Resolving]
  - Hypokalaemia [Unknown]
  - Dry skin [Not Recovered/Not Resolved]
  - Gastroenteritis viral [Unknown]

NARRATIVE: CASE EVENT DATE: 20191018
